FAERS Safety Report 5238007-7 (Version None)
Quarter: 2007Q1

REPORT INFORMATION
  Report Type: 
  Country: None (occurrence: None)
  Receive Date: 20070214
  Receipt Date: 20070202
  Transmission Date: 20070707
  Serious: Yes (Death, Life-Threatening)
  Sender: FDA-Public Use
  Company Number: KR-PFIZER INC-2007005021

PATIENT
  Sex: Female
  Weight: 57.8 kg

DRUGS (2)
  1. SU-011,248 [Suspect]
     Indication: GASTROINTESTINAL STROMAL TUMOUR
     Route: 048
  2. SU-011,248 [Suspect]
     Route: 048
     Dates: start: 20061219, end: 20070110

REACTIONS (2)
  - CARDIAC ARREST [None]
  - CHEST PAIN [None]
